FAERS Safety Report 5023840-7 (Version None)
Quarter: 2006Q2

REPORT INFORMATION
  Report Type: 
  Country: None (occurrence: None)
  Receive Date: 20060606
  Receipt Date: 20060511
  Transmission Date: 20061013
  Serious: Yes (Other)
  Sender: FDA-Public Use
  Company Number: HQWYE818502JUN06

PATIENT
  Sex: Female

DRUGS (1)
  1. ADVIL [Suspect]
     Dosage: 3-4 CAPSLES AT A TIME (FREQUENCY UNKNOWN), ORAL
     Route: 048

REACTIONS (2)
  - DRUG DEPENDENCE [None]
  - INCORRECT DOSE ADMINISTERED [None]
